FAERS Safety Report 5255189-1 (Version None)
Quarter: 2007Q1

REPORT INFORMATION
  Report Type: 
  Country: None (occurrence: None)
  Receive Date: 20070305
  Receipt Date: 20070220
  Transmission Date: 20070707
  Serious: Yes (Other)
  Sender: FDA-Public Use
  Company Number: PHBS2006JP14729

PATIENT
  Age: 31 Year
  Sex: Male

DRUGS (4)
  1. NEORAL [Suspect]
     Indication: BEHCET'S SYNDROME
     Dosage: 200 MG/D
     Route: 048
  2. COLCHICINE [Concomitant]
     Indication: BEHCET'S SYNDROME
  3. ASPIRIN [Concomitant]
     Indication: BEHCET'S SYNDROME
  4. STEROIDS NOS [Concomitant]
     Indication: UVEITIS

REACTIONS (3)
  - MENINGISM [None]
  - UVEITIS [None]
  - VISUAL ACUITY REDUCED [None]
